FAERS Safety Report 22392368 (Version 1)
Quarter: 2023Q2

REPORT INFORMATION
  Report Type: Report from Study
  Country: ES (occurrence: None)
  Receive Date: 20230601
  Receipt Date: 20230601
  Transmission Date: 20230722
  Serious: Yes (Hospitalization)
  Sender: FDA-Public Use
  Company Number: ES-ROCHE-2856382

PATIENT
  Age: 45 Year
  Sex: Female
  Weight: 62 kg

DRUGS (45)
  1. ATEZOLIZUMAB [Suspect]
     Active Substance: ATEZOLIZUMAB
     Indication: Triple negative breast cancer
     Dosage: MOST RECENT DOSE 840 MG OF ATEZOLIZUMAB PRIOR TO AE (ADVERSE EVENT): 10/JUN/2021,  07/JUL/2021, 20/J
     Route: 041
     Dates: start: 20210415
  2. PACLITAXEL [Suspect]
     Active Substance: PACLITAXEL
     Indication: Triple negative breast cancer
     Dosage: ON DAYS 1, 8, AND 15 OF EACH 28-DAY CYCLE (AS PER PROTOCOL)?MOST RECENT DOSE 161 (UNIT NOT REPORTED)
     Route: 042
     Dates: start: 20210415
  3. GABAPENTIN [Concomitant]
     Active Substance: GABAPENTIN
     Indication: Neuralgia
     Route: 048
     Dates: start: 20210124
  4. NALOXONE HYDROCHLORIDE\OXYCODONE HYDROCHLORIDE [Concomitant]
     Active Substance: NALOXONE HYDROCHLORIDE\OXYCODONE HYDROCHLORIDE
     Indication: Neuralgia
     Route: 048
     Dates: start: 20210203
  5. DEXKETOPROFEN TROMETAMOL [Concomitant]
     Active Substance: DEXKETOPROFEN TROMETAMOL
     Indication: Neuralgia
     Route: 048
     Dates: start: 202102
  6. LORAZEPAM [Concomitant]
     Active Substance: LORAZEPAM
     Indication: Insomnia
     Route: 048
     Dates: start: 20210420
  7. MOVICOL [Concomitant]
     Active Substance: POLYETHYLENE GLYCOL 3350\POTASSIUM CHLORIDE\SODIUM BICARBONATE\SODIUM CHLORIDE
     Indication: Constipation
     Route: 048
     Dates: start: 20210420
  8. DEXAMETHASONE [Concomitant]
     Active Substance: DEXAMETHASONE
     Route: 048
     Dates: start: 20210408
  9. OMEPRAZOLE [Concomitant]
     Active Substance: OMEPRAZOLE
     Indication: Gastrooesophageal reflux disease
     Route: 048
     Dates: start: 20210516, end: 20210607
  10. OMEPRAZOLE [Concomitant]
     Active Substance: OMEPRAZOLE
     Indication: Prophylaxis
     Route: 048
     Dates: start: 20210608
  11. OMEPRAZOLE [Concomitant]
     Active Substance: OMEPRAZOLE
     Route: 048
     Dates: start: 20210623, end: 20210623
  12. OMEPRAZOLE [Concomitant]
     Active Substance: OMEPRAZOLE
     Route: 048
     Dates: start: 20210623
  13. ACETAMINOPHEN [Concomitant]
     Active Substance: ACETAMINOPHEN
     Indication: Headache
     Route: 042
     Dates: start: 20210518, end: 20210518
  14. LEVOSULPIRIDE [Concomitant]
     Active Substance: LEVOSULPIRIDE
     Indication: Nausea
     Route: 048
     Dates: start: 20210518
  15. AZITHROMYCIN [Concomitant]
     Active Substance: AZITHROMYCIN
     Indication: Respiratory tract infection
     Route: 048
     Dates: start: 20210615, end: 20210618
  16. METOCLOPRAMIDE [Concomitant]
     Active Substance: METOCLOPRAMIDE
     Indication: Vomiting
     Route: 042
     Dates: start: 20210622, end: 20210623
  17. ONDANSETRON [Concomitant]
     Active Substance: ONDANSETRON
     Indication: Vomiting
     Route: 048
     Dates: start: 20210610, end: 20210614
  18. LEVOFLOXACIN [Concomitant]
     Active Substance: LEVOFLOXACIN
     Indication: Respiratory tract infection
     Dates: start: 20210527, end: 20210531
  19. OLAPARIB [Concomitant]
     Active Substance: OLAPARIB
     Dates: start: 20111124
  20. DEXKETOPROFEN [Concomitant]
     Active Substance: DEXKETOPROFEN
     Indication: Neuralgia
     Dates: start: 20210622, end: 20210625
  21. MAGNESIUM HYDROXIDE [Concomitant]
     Active Substance: MAGNESIUM HYDROXIDE
     Indication: Constipation
  22. CAPECITABINE [Concomitant]
     Active Substance: CAPECITABINE
     Route: 048
  23. CYCLOPHOSPHAMIDE [Concomitant]
     Active Substance: CYCLOPHOSPHAMIDE
  24. DOCETAXEL [Concomitant]
     Active Substance: DOCETAXEL
  25. DOXORUBICIN [Concomitant]
     Active Substance: DOXORUBICIN
  26. TRASTUZUMAB [Concomitant]
     Active Substance: TRASTUZUMAB
     Route: 065
  27. TAMOXIFEN [Concomitant]
     Active Substance: TAMOXIFEN
  28. ERIBULIN [Concomitant]
     Active Substance: ERIBULIN
  29. VINORELBINE [Concomitant]
     Active Substance: VINORELBINE TARTRATE
  30. HUMAN RED BLOOD CELL [Concomitant]
     Active Substance: HUMAN RED BLOOD CELL
     Indication: Anaemia
     Route: 042
     Dates: start: 20210627, end: 20210627
  31. HUMAN RED BLOOD CELL [Concomitant]
     Active Substance: HUMAN RED BLOOD CELL
     Route: 042
     Dates: start: 20210811, end: 20210811
  32. AMOXICILLIN\CLAVULANIC ACID [Concomitant]
     Active Substance: AMOXICILLIN\CLAVULANIC ACID
     Indication: Lower respiratory tract infection
     Dosage: SOLUTION 1G/200MG
     Route: 042
     Dates: start: 20210625, end: 20210628
  33. AMOXICILLIN\CLAVULANIC ACID [Concomitant]
     Active Substance: AMOXICILLIN\CLAVULANIC ACID
     Dosage: 875/125 MG
     Route: 048
     Dates: start: 20210628, end: 20210701
  34. AMOXICILLIN [Concomitant]
     Active Substance: AMOXICILLIN
     Indication: Lower respiratory tract infection
     Route: 048
     Dates: start: 20210628, end: 20210628
  35. AMOXICILLIN [Concomitant]
     Active Substance: AMOXICILLIN
     Dosage: DRUG DOSE FIRST ADMINISTERED IS 1 AMPULE
     Route: 042
     Dates: start: 20210625, end: 20210628
  36. DEXTROMETHORPHAN [Concomitant]
     Active Substance: DEXTROMETHORPHAN
     Indication: Cough
     Dates: start: 20210804, end: 20210813
  37. ALBUTEROL [Concomitant]
     Active Substance: ALBUTEROL
     Indication: Lower respiratory tract infection
     Route: 055
     Dates: start: 20210624, end: 20210628
  38. MAGNESIUM CHLORIDE [Concomitant]
     Active Substance: MAGNESIUM CHLORIDE
     Indication: Hypomagnesaemia
     Dates: start: 20210810, end: 20210813
  39. POTASSIUM ASCORBATE [Concomitant]
     Active Substance: POTASSIUM ASCORBATE
     Indication: Hypokalaemia
     Dates: start: 20210811, end: 20210813
  40. FOLIC ACID [Concomitant]
     Active Substance: FOLIC ACID
     Indication: Anaemia
     Dates: start: 20210807, end: 20210813
  41. PIPERACILLIN AND TAZOBACTAM [Concomitant]
     Active Substance: PIPERACILLIN SODIUM\TAZOBACTAM SODIUM
     Indication: Pyuria
     Dates: start: 20210808, end: 20210813
  42. PARAFFIN [Concomitant]
     Active Substance: PARAFFIN
     Indication: Constipation
     Dates: start: 20210810, end: 20210813
  43. MORPHINE [Concomitant]
     Active Substance: MORPHINE
     Indication: Pain in extremity
     Dates: start: 20210626, end: 20210628
  44. OXYCODONE [Concomitant]
     Active Substance: OXYCODONE
  45. ENOXAPARIN [Concomitant]
     Active Substance: ENOXAPARIN

REACTIONS (2)
  - Vomiting [Recovered/Resolved]
  - Tubulointerstitial nephritis [Recovered/Resolved]

NARRATIVE: CASE EVENT DATE: 20210616
